FAERS Safety Report 24137048 (Version 3)
Quarter: 2024Q3

REPORT INFORMATION
  Report Type: Spontaneous
  Country: US (occurrence: US)
  Receive Date: 20240725
  Receipt Date: 20240829
  Transmission Date: 20241017
  Serious: Yes (Other)
  Sender: ROCHE
  Company Number: US-ROCHE-10000033853

PATIENT
  Age: 73 Year
  Sex: Female

DRUGS (3)
  1. VABYSMO [Suspect]
     Active Substance: FARICIMAB\FARICIMAB-SVOA
     Indication: Neovascular age-related macular degeneration
     Dosage: LEFT EYE??TOTAL NUMBER OF INJECTION RECEIVED PRIOR TO THE EVENT- 8
     Route: 065
     Dates: start: 20230920
  2. AVASTIN [Suspect]
     Active Substance: BEVACIZUMAB
     Indication: Neovascular age-related macular degeneration
     Dosage: LEFT EYE??PRIOR IVT
     Route: 050
     Dates: start: 20191121
  3. AFLIBERCEPT [Suspect]
     Active Substance: AFLIBERCEPT
     Indication: Neovascular age-related macular degeneration
     Dosage: LEFT EYE??PRIOR IVT
     Route: 050
     Dates: start: 20210321

REACTIONS (3)
  - Endophthalmitis [Recovered/Resolved with Sequelae]
  - Off label use [Unknown]
  - Off label use [Unknown]

NARRATIVE: CASE EVENT DATE: 20240629
